FAERS Safety Report 8011684-3 (Version None)
Quarter: 2011Q4

REPORT INFORMATION
  Report Type: 
  Country: None (occurrence: None)
  Receive Date: 20111228
  Receipt Date: 20111227
  Transmission Date: 20120403
  Serious: Yes (Other)
  Sender: FDA-Public Use
  Company Number: BR-BAYER-2011-123607

PATIENT
  Age: 44 Year
  Sex: Female
  Weight: 62 kg

DRUGS (3)
  1. ASPIRIN [Suspect]
     Indication: VASODILATATION
     Dosage: 100 MG, QD
     Route: 048
     Dates: start: 20111217, end: 20111226
  2. MIRTAZAPINE [Concomitant]
     Indication: ANXIETY
     Dosage: 15 MG, QD
     Route: 048
     Dates: start: 20111101
  3. DIOSMIN [Concomitant]
     Indication: CARDIOVASCULAR DISORDER
     Dosage: 1 DF, QD
     Route: 048
     Dates: start: 20090101

REACTIONS (3)
  - BUCCAL MUCOSAL ROUGHENING [None]
  - HAEMATOMA [None]
  - INFARCTION [None]
